FAERS Safety Report 11698562 (Version 1)
Quarter: 2015Q4

REPORT INFORMATION
  Report Type: Spontaneous
  Country: US (occurrence: US)
  Receive Date: 20151104
  Receipt Date: 20151104
  Transmission Date: 20160304
  Serious: No
  Sender: FDA-Public Use
  Company Number: US-ELI_LILLY_AND_COMPANY-US201101000778

PATIENT
  Age: 64 Year
  Sex: Female

DRUGS (1)
  1. FORTEO [Suspect]
     Active Substance: TERIPARATIDE
     Indication: OSTEOPOROSIS
     Dosage: 20 UG, DAILY (1/D)
     Dates: start: 20101210

REACTIONS (9)
  - Blood pressure fluctuation [Unknown]
  - Nervousness [Unknown]
  - Fatigue [Unknown]
  - Arthralgia [Unknown]
  - Urticaria [Unknown]
  - Erythema [Unknown]
  - Injection site bruising [Unknown]
  - Nasopharyngitis [Recovering/Resolving]
  - Pain [Unknown]

NARRATIVE: CASE EVENT DATE: 201012
